FAERS Safety Report 17028302 (Version 3)
Quarter: 2020Q1

REPORT INFORMATION
  Report Type: Spontaneous
  Country: JP (occurrence: JP)
  Receive Date: 20191113
  Receipt Date: 20200102
  Transmission Date: 20200409
  Serious: Yes (Hospitalization)
  Sender: FDA-Public Use
  Company Number: JP-NOVOPROD-693480

PATIENT
  Age: 80 Year
  Sex: Female
  Weight: 62.9 kg

DRUGS (9)
  1. TRESIBA [Suspect]
     Active Substance: INSULIN DEGLUDEC
     Indication: PANCREATOGENOUS DIABETES
     Dosage: 8 IU, QD
     Route: 058
     Dates: start: 201707, end: 20180217
  2. PRAZAXA [Concomitant]
     Active Substance: DABIGATRAN ETEXILATE MESYLATE
     Indication: ATRIAL FIBRILLATION
     Dosage: 220 MG, QD
     Route: 048
     Dates: end: 20180217
  3. FERROMIA [Concomitant]
     Active Substance: SODIUM FERROUS CITRATE
     Indication: URETERAL STENT INSERTION
     Dosage: 100 MG, QD
     Route: 048
     Dates: end: 20180217
  4. FERROMIA [Concomitant]
     Active Substance: SODIUM FERROUS CITRATE
     Indication: PYELONEPHRITIS
  5. URSO [Concomitant]
     Active Substance: URSODIOL
     Dosage: 300 MG, QD
     Route: 048
     Dates: end: 20180217
  6. METHYCOBAL [Concomitant]
     Active Substance: METHYLCOBALAMIN
     Indication: PANCREATOGENOUS DIABETES
     Dosage: 1500 MG, QD
     Route: 048
     Dates: end: 20180217
  7. LIPACREON [Concomitant]
     Active Substance: PANCRELIPASE
     Indication: PANCREATECTOMY
     Dosage: 1800 MG, QD
     Route: 048
     Dates: start: 201707, end: 20180217
  8. NOVORAPID [Suspect]
     Active Substance: INSULIN ASPART
     Indication: PANCREATOGENOUS DIABETES
     Dosage: 16 IU, QD
     Route: 058
     Dates: start: 201707, end: 20180217
  9. TAKECAB [Concomitant]
     Active Substance: VONOPRAZAN FUMURATE
     Indication: PANCREATECTOMY
     Dosage: 10 MG, QD
     Route: 048
     Dates: end: 20180217

REACTIONS (2)
  - Hypoglycaemia [Unknown]
  - Hypoglycaemia [Unknown]

NARRATIVE: CASE EVENT DATE: 20180214
